FAERS Safety Report 5087392-8 (Version None)
Quarter: 2006Q3

REPORT INFORMATION
  Report Type: 
  Country: None (occurrence: None)
  Receive Date: 20060822
  Receipt Date: 20060822
  Transmission Date: 20061208
  Serious: Yes (Hospitalization)
  Sender: FDA-Public Use
  Company Number: None

PATIENT
  Age: 74 Year
  Sex: Male
  Weight: 110.2241 kg

DRUGS (19)
  1. DILTIAZEM 240 MG SA CAP [Suspect]
     Indication: ATRIAL FLUTTER
     Dosage: 240 MG DAILY PO INCREASED ON 5/4/06
     Route: 048
     Dates: start: 20060417
  2. DILTIAZEM 240 MG SA CAP [Suspect]
     Indication: HYPERTENSION
     Dosage: 240 MG DAILY PO INCREASED ON 5/4/06
     Route: 048
     Dates: start: 20060417
  3. DILTIAZEM 240 MG SA CAP [Suspect]
     Indication: ATRIAL FLUTTER
     Dosage: 240 MG DAILY PO INCREASED ON 5/4/06
     Route: 048
     Dates: start: 20060504
  4. DILTIAZEM 240 MG SA CAP [Suspect]
     Indication: HYPERTENSION
     Dosage: 240 MG DAILY PO INCREASED ON 5/4/06
     Route: 048
     Dates: start: 20060504
  5. METOPROLOL 100 MG [Suspect]
     Indication: ATRIAL FLUTTER
     Dosage: 100 MG BID PO
     Route: 048
  6. METOPROLOL 100 MG [Suspect]
     Indication: HYPERTENSION
     Dosage: 100 MG BID PO
     Route: 048
  7. DIGOXIN [Suspect]
     Dosage: 0.625 MG PO DAILY
     Route: 048
  8. KETOCONAZOLE [Concomitant]
  9. GLYBURIDE [Concomitant]
  10. LISINOPRIL [Concomitant]
  11. METFORMIN HCL [Concomitant]
  12. ROSIGLITAZONE [Concomitant]
  13. SIMVASTATIN [Concomitant]
  14. ASPIRIN [Concomitant]
  15. TEMAZEPAM [Concomitant]
  16. WARFARIN [Concomitant]
  17. DIGOXIN [Concomitant]
  18. DILTIAZEM HCL [Concomitant]
  19. METOPROLOL TARTRATE [Concomitant]

REACTIONS (10)
  - ANXIETY [None]
  - ASTHENIA [None]
  - ATRIOVENTRICULAR BLOCK THIRD DEGREE [None]
  - BRADYCARDIA [None]
  - CARDIAC ARREST [None]
  - DRUG EFFECT DECREASED [None]
  - HYPERKALAEMIA [None]
  - HYPOTENSION [None]
  - NAUSEA [None]
  - RETCHING [None]
